FAERS Safety Report 7750305-1 (Version None)
Quarter: 2011Q3

REPORT INFORMATION
  Report Type: 
  Country: None (occurrence: None)
  Receive Date: 20110914
  Receipt Date: 20110901
  Transmission Date: 20111222
  Serious: Yes (Other)
  Sender: FDA-Public Use
  Company Number: US-ELI_LILLY_AND_COMPANY-US201108000756

PATIENT
  Sex: Female

DRUGS (13)
  1. LOSARTAN POTASSIUM [Concomitant]
     Route: 065
  2. CYMBALTA [Concomitant]
     Route: 065
  3. FORTEO [Suspect]
     Indication: OSTEOPOROSIS
     Dosage: 20 UG, BID
     Route: 058
     Dates: start: 20110212, end: 20110620
  4. TRAMADOL HCL [Concomitant]
     Route: 065
  5. FOLIC ACID [Concomitant]
     Route: 065
  6. HYDROCORTISONE [Concomitant]
     Route: 065
  7. PANTOPRAZOLE [Concomitant]
     Route: 065
  8. VITAMIN D [Concomitant]
     Dosage: 50000 UL, UNK
  9. FENTANYL [Concomitant]
     Route: 065
  10. DIAZEPAM [Concomitant]
     Route: 065
  11. METOPROLOL [Concomitant]
  12. CYANOCOBALAMIN [Concomitant]
  13. METOCLOPRAMIDE [Concomitant]
     Route: 065

REACTIONS (7)
  - HYPERTENSION [None]
  - OVERDOSE [None]
  - BLOOD URINE PRESENT [None]
  - PROTEIN URINE PRESENT [None]
  - ABDOMINAL DISTENSION [None]
  - BONE PAIN [None]
  - WEIGHT INCREASED [None]
